FAERS Safety Report 5193322-0 (Version None)
Quarter: 2006Q4

REPORT INFORMATION
  Report Type: 
  Country: None (occurrence: None)
  Receive Date: 20061228
  Receipt Date: 20060919
  Transmission Date: 20070319
  Serious: No
  Sender: FDA-Public Use
  Company Number: US-GLAXOSMITHKLINE-A0620697A

PATIENT
  Age: 81 Year
  Sex: Female

DRUGS (4)
  1. AVODART [Suspect]
     Indication: DRUG USE FOR UNKNOWN INDICATION
     Dosage: .5MG PER DAY
     Route: 048
     Dates: start: 20060701
  2. FORTEO [Suspect]
     Dosage: 1INJ PER DAY
     Dates: start: 20060701
  3. FORTEO [Concomitant]
  4. SYNTHROID [Concomitant]

REACTIONS (1)
  - PRURITUS [None]
